APPROVED DRUG PRODUCT: FEMLYV
Active Ingredient: ETHINYL ESTRADIOL; NORETHINDRONE ACETATE
Strength: 0.02MG;1MG
Dosage Form/Route: TABLET, ORALLY DISINTEGRATING;ORAL
Application: N218718 | Product #001
Applicant: MILLICENT PUERTO RICO LLC
Approved: Jul 22, 2024 | RLD: Yes | RS: Yes | Type: RX

PATENTS:
Patent 12178824 | Expires: Jun 24, 2041

EXCLUSIVITY:
Code: NP | Date: Jul 22, 2027